FAERS Safety Report 23272668 (Version 1)
Quarter: 2023Q4

REPORT INFORMATION
  Report Type: Spontaneous
  Country: CN (occurrence: CN)
  Receive Date: 20231207
  Receipt Date: 20231207
  Transmission Date: 20240110
  Serious: Yes (Other)
  Sender: FDA-Public Use
  Company Number: CN-PFIZER INC-PV202300192864

PATIENT
  Age: 68 Year
  Sex: Male

DRUGS (10)
  1. VORICONAZOLE [Suspect]
     Active Substance: VORICONAZOLE
     Dosage: 200 MG, 2X/DAY
     Route: 048
  2. CEFOPERAZONE\TAZOBACTAM SODIUM [Concomitant]
     Active Substance: CEFOPERAZONE\TAZOBACTAM SODIUM
     Indication: Bacterial infection
     Dosage: 2 G, 3X/DAY
     Route: 041
  3. AMBROXOL HYDROCHLORIDE [Concomitant]
     Active Substance: AMBROXOL HYDROCHLORIDE
     Indication: Productive cough
     Dosage: 30 MG, 2X/DAY
     Route: 041
  4. TERBUTALINE SULFATE [Concomitant]
     Active Substance: TERBUTALINE SULFATE
     Indication: Bronchiectasis
     Dosage: 5 MG, 3X/DAY
     Route: 055
  5. TERBUTALINE SULFATE [Concomitant]
     Active Substance: TERBUTALINE SULFATE
     Indication: Inflammation
  6. BUDESONIDE [Concomitant]
     Active Substance: BUDESONIDE
     Indication: Bronchiectasis
     Dosage: 1 MG, 3X/DAY
     Route: 055
  7. BUDESONIDE [Concomitant]
     Active Substance: BUDESONIDE
     Indication: Inflammation
  8. CASPOFUNGIN ACETATE [Concomitant]
     Active Substance: CASPOFUNGIN ACETATE
     Dosage: 70 MG, 1X/DAY
     Route: 041
  9. CASPOFUNGIN ACETATE [Concomitant]
     Active Substance: CASPOFUNGIN ACETATE
     Dosage: 50 MG, 1X/DAY
     Route: 041
  10. AGKISTRODON ACUTUS [Concomitant]
     Indication: Haemoptysis
     Dosage: 1 IU, 2X/DAY
     Route: 041

REACTIONS (5)
  - Hypoproteinaemia [Unknown]
  - Dizziness [Recovering/Resolving]
  - Vision blurred [Recovering/Resolving]
  - Face oedema [Unknown]
  - Oedema peripheral [Recovered/Resolved]
